FAERS Safety Report 5654643-8 (Version None)
Quarter: 2008Q1

REPORT INFORMATION
  Report Type: 
  Country: None (occurrence: None)
  Receive Date: 20080307
  Receipt Date: 20080229
  Transmission Date: 20080703
  Serious: Yes (Hospitalization, Other)
  Sender: FDA-Public Use
  Company Number: GB-SANOFI-SYNTHELABO-A01200801998

PATIENT
  Sex: Female

DRUGS (2)
  1. FOLINIC ACID [Concomitant]
     Dosage: UNK
     Route: 065
  2. ELOXATIN [Suspect]
     Route: 042

REACTIONS (1)
  - HYDRONEPHROSIS [None]
